FAERS Safety Report 24969617 (Version 6)
Quarter: 2025Q4

REPORT INFORMATION
  Report Type: Other
  Country: US (occurrence: US)
  Receive Date: 20250214
  Receipt Date: 20251231
  Transmission Date: 20260117
  Serious: No
  Sender: TRAVERE THERAPEUTICS
  Company Number: US-TRAVERE-2025TVT00166

PATIENT
  Age: 65 Year
  Sex: Female

DRUGS (1)
  1. FILSPARI [Suspect]
     Active Substance: SPARSENTAN
     Indication: IgA nephropathy
     Dosage: LOT NUMBER: 1976070, EXPIRY DATE: 31-AUG-2025?LOT NUMBER: 1976071, EXPIRY DATE: 31-MAY-2026
     Route: 048
     Dates: start: 202501

REACTIONS (14)
  - Muscle spasms [Recovered/Resolved]
  - Feeling abnormal [Unknown]
  - Dizziness [Recovered/Resolved]
  - Vomiting [Recovered/Resolved]
  - Dyspnoea [Recovered/Resolved]
  - Feeling hot [Recovered/Resolved]
  - Chest pain [Recovered/Resolved]
  - Headache [Unknown]
  - Fatigue [Unknown]
  - Dysphonia [Unknown]
  - Speech disorder [Unknown]
  - Flushing [Unknown]
  - Back pain [Recovered/Resolved]
  - Bone density abnormal [Unknown]

NARRATIVE: CASE EVENT DATE: 20250202
